FAERS Safety Report 15980569 (Version 1)
Quarter: 2019Q1

REPORT INFORMATION
  Report Type: Report from Study
  Country: FR (occurrence: FR)
  Receive Date: 20190219
  Receipt Date: 20190219
  Transmission Date: 20190418
  Serious: Yes (Other)
  Sender: FDA-Public Use
  Company Number: FR-BIOVITRUM-2019FR0275

PATIENT
  Age: 4 Year
  Sex: Male
  Weight: 17 kg

DRUGS (7)
  1. PARACETAMOL [Concomitant]
     Active Substance: ACETAMINOPHEN
  2. ASPIRINE [Concomitant]
     Active Substance: ASPIRIN
  3. ASPEGIC (ACETYLSALICYLATE LYSINE) [Concomitant]
     Active Substance: ASPIRIN DL-LYSINE
     Dosage: 72 KG/MG/DAY
  4. KINERET [Suspect]
     Active Substance: ANAKINRA
     Indication: KAWASAKI^S DISEASE
     Route: 058
     Dates: start: 20181016, end: 20181018
  5. INEXIUM [Concomitant]
     Active Substance: ESOMEPRAZOLE
  6. KINERET [Suspect]
     Active Substance: ANAKINRA
     Route: 058
     Dates: start: 20181019, end: 20181019
  7. ATARAX [Concomitant]
     Active Substance: HYDROXYZINE HYDROCHLORIDE
     Dosage: IF NEEDED

REACTIONS (1)
  - Still^s disease [Unknown]
